FAERS Safety Report 8481949-X (Version None)
Quarter: 2012Q3

REPORT INFORMATION
  Report Type: 
  Country: None (occurrence: None)
  Receive Date: 20120702
  Receipt Date: 20120625
  Transmission Date: 20120928
  Serious: Yes (Other)
  Sender: FDA-Public Use
  Company Number: VE-PFIZER INC-2012148366

PATIENT
  Age: 74 Year
  Sex: Female

DRUGS (5)
  1. AMIODARONE HCL [Concomitant]
     Dosage: 200 MG, 1X/DAY
     Route: 048
     Dates: start: 20050101
  2. JANUMET [Concomitant]
     Dosage: 850 MG, 1X/DAY
     Route: 048
     Dates: start: 20050101
  3. LIPITOR [Suspect]
     Indication: HYPERCHOLESTEROLAEMIA
     Dosage: 20 MG, 1X/DAY
     Route: 048
  4. AMARYL [Concomitant]
     Dosage: 4 MG, 1X/DAY
     Route: 048
     Dates: start: 20050101
  5. HYZAAR [Concomitant]
     Dosage: 50 MG, 1X/DAY
     Route: 048
     Dates: start: 20050101

REACTIONS (1)
  - CARDIAC DISORDER [None]
